FAERS Safety Report 5068985-0 (Version None)
Quarter: 2006Q3

REPORT INFORMATION
  Report Type: 
  Country: None (occurrence: None)
  Receive Date: 20060802
  Receipt Date: 20060728
  Transmission Date: 20061208
  Serious: Yes (Death)
  Sender: FDA-Public Use
  Company Number: CA-BOEHRINGER INGELHEIM PHARMACEUTICALS, INC.-2006-CN-00383CN

PATIENT
  Age: 64 Year
  Sex: Male

DRUGS (18)
  1. COMBIVENT [Suspect]
     Dosage: 2 PUFFS Q4H PRN
     Route: 055
  2. RISPERIDONE [Concomitant]
  3. VENLAFAXINE HCL [Concomitant]
     Indication: DEPRESSION
  4. LOXAPINE HYDROCHLORIDE [Concomitant]
  5. TRAZODONE HCL [Concomitant]
  6. TRAZODONE HCL [Concomitant]
  7. TRAZODONE HCL [Concomitant]
  8. NOVOLIN [Concomitant]
     Dosage: 30/70 14 UNITS QAM
  9. NPH INSULIN [Concomitant]
     Dosage: 12 UNITS
  10. METFORMIN HYDROCHLORIDE [Concomitant]
  11. ASPIRIN [Concomitant]
  12. RAMIPRIL [Concomitant]
  13. MULTIVITAMIN [Concomitant]
  14. LACTULOSE [Concomitant]
  15. MAGNESIUM HYDROXIDE TAB [Concomitant]
     Dosage: 30 CC OD AND PRN
  16. ACETAMINOPHEN [Concomitant]
     Dosage: 2 TABLETS Q4H PRN
  17. HYDROCHLOROTHIAZIDE [Concomitant]
  18. MINERAL TAB [Concomitant]

REACTIONS (31)
  - ADHESION [None]
  - AGGRESSION [None]
  - ANAL INJURY [None]
  - ARRHYTHMIA [None]
  - ARTERIOSCLEROSIS CORONARY ARTERY [None]
  - BLOOD GLUCOSE INCREASED [None]
  - BRAIN STEM INFARCTION [None]
  - BRONCHITIS [None]
  - BUNDLE BRANCH BLOCK RIGHT [None]
  - CONDITION AGGRAVATED [None]
  - CONFUSIONAL STATE [None]
  - CORONARY ARTERY DISEASE [None]
  - CYANOSIS [None]
  - DECUBITUS ULCER [None]
  - DEPRESSED LEVEL OF CONSCIOUSNESS [None]
  - DIARRHOEA [None]
  - DYSPNOEA [None]
  - EXCORIATION [None]
  - FALL [None]
  - GENERAL PHYSICAL HEALTH DETERIORATION [None]
  - HYPERHIDROSIS [None]
  - HYPOGLYCAEMIA [None]
  - INTERCAPILLARY GLOMERULOSCLEROSIS [None]
  - JOINT SWELLING [None]
  - PARKINSON'S DISEASE [None]
  - PLEURAL EFFUSION [None]
  - PNEUMONIA [None]
  - PYREXIA [None]
  - SOMNOLENCE [None]
  - URINARY INCONTINENCE [None]
  - URINARY TRACT INFECTION [None]
